FAERS Safety Report 9300540 (Version 1)
Quarter: 2013Q2

REPORT INFORMATION
  Report Type: Spontaneous
  Country: IT (occurrence: IT)
  Receive Date: 20130521
  Receipt Date: 20130521
  Transmission Date: 20140414
  Serious: Yes (Other)
  Sender: FDA-Public Use
  Company Number: IT-TEVA-405608ISR

PATIENT
  Age: 66 Year
  Sex: Male
  Weight: 69 kg

DRUGS (5)
  1. VINCRISTINA TEVA ITALIA [Suspect]
     Indication: NON-HODGKIN^S LYMPHOMA
     Dosage: 682 MILLIGRAM DAILY;
     Route: 041
     Dates: start: 20130312, end: 20130409
  2. METHOTREXATE [Suspect]
     Indication: NON-HODGKIN^S LYMPHOMA
     Dosage: 682 MILLIGRAM DAILY;
     Route: 041
     Dates: start: 20130312, end: 20130409
  3. ADRIBLASTINA [Suspect]
     Indication: NON-HODGKIN^S LYMPHOMA
     Dosage: 682 MILLIGRAM DAILY;
     Route: 041
     Dates: start: 20130312, end: 20130409
  4. ENDOXAN BAXTER [Suspect]
     Indication: NON-HODGKIN^S LYMPHOMA
     Dosage: 682 MILLIGRAM DAILY;
     Route: 041
     Dates: start: 20130312, end: 20130409
  5. MABTHERA [Suspect]
     Indication: NON-HODGKIN^S LYMPHOMA
     Dosage: 682 MILLIGRAM DAILY;
     Route: 041
     Dates: start: 20130312, end: 20130409

REACTIONS (2)
  - Neutropenia [Recovering/Resolving]
  - Stomatitis [Recovering/Resolving]
